FAERS Safety Report 7804211-4 (Version None)
Quarter: 2011Q4

REPORT INFORMATION
  Report Type: 
  Country: None (occurrence: None)
  Receive Date: 20111010
  Receipt Date: 20110928
  Transmission Date: 20120403
  Serious: Yes (Hospitalization, Other)
  Sender: FDA-Public Use
  Company Number: CA-JNJFOC-20110903160

PATIENT
  Sex: Female
  Weight: 77 kg

DRUGS (11)
  1. BENZTROPINE MESYLATE [Concomitant]
  2. BACLOFEN [Concomitant]
  3. TYLENOL W/ CODEINE NO. 3 [Concomitant]
  4. CELEBREX [Concomitant]
  5. NAPROXEN [Concomitant]
  6. GABAPENTIN [Concomitant]
  7. TYLENOL W/ CODEINE NO. 4 [Concomitant]
  8. ANTI-INFLAMMATORY [Concomitant]
  9. REMICADE [Suspect]
     Indication: ANKYLOSING SPONDYLITIS
     Route: 042
     Dates: start: 20100125, end: 20110718
  10. SULFASALAZINE [Concomitant]
  11. OMEPRAZOLE [Concomitant]

REACTIONS (5)
  - VENTRICULAR TACHYCARDIA [None]
  - ACUTE MYOCARDIAL INFARCTION [None]
  - LEUKOCYTOCLASTIC VASCULITIS [None]
  - PNEUMONIA [None]
  - RECTAL HAEMORRHAGE [None]
